FAERS Safety Report 5394984-5 (Version None)
Quarter: 2007Q3

REPORT INFORMATION
  Report Type: 
  Country: None (occurrence: None)
  Receive Date: 20070724
  Receipt Date: 20070713
  Transmission Date: 20080115
  Serious: Yes (Other)
  Sender: FDA-Public Use
  Company Number: PHHO2007BR11738

PATIENT
  Age: 78 Year
  Sex: Female
  Weight: 68 kg

DRUGS (3)
  1. ZELNORM [Suspect]
     Indication: INTESTINAL OBSTRUCTION
     Dosage: 6 MG, BID
     Route: 048
     Dates: end: 20070712
  2. ATENOLOL [Concomitant]
     Indication: HYPERTENSION
  3. MOTILIUM [Concomitant]
     Indication: INTESTINAL OBSTRUCTION

REACTIONS (5)
  - BODY FAT DISORDER [None]
  - FLATULENCE [None]
  - NERVOUSNESS [None]
  - SPINAL DISORDER [None]
  - SPINAL OPERATION [None]
